FAERS Safety Report 7362172-9 (Version None)
Quarter: 2011Q1

REPORT INFORMATION
  Report Type: 
  Country: None (occurrence: None)
  Receive Date: 20110318
  Receipt Date: 20110315
  Transmission Date: 20110831
  Serious: Yes (Life-Threatening, Hospitalization, Disabling, Other)
  Sender: FDA-Public Use
  Company Number: BR-BAYER-201020222LA

PATIENT
  Sex: Female

DRUGS (10)
  1. BETAFERON [Suspect]
     Dosage: 9.600 MIU, QOD
     Dates: start: 20100701, end: 20100801
  2. BETAFERON [Suspect]
     Indication: SECONDARY PROGRESSIVE MULTIPLE SCLEROSIS
     Dosage: BETAJECT
     Route: 058
     Dates: start: 20030101
  3. DULCOLAX [Concomitant]
     Indication: PROPHYLAXIS
     Dosage: 1 TABLET / 3 DAYS
     Route: 048
     Dates: start: 20040101, end: 20040615
  4. LISADOR [Concomitant]
     Indication: PAIN PROPHYLAXIS
     Dosage: 1 TABLET / 3 DAYS
     Route: 048
     Dates: start: 20040101, end: 20040615
  5. BETAFERON [Suspect]
     Dosage: BETAJECT
     Route: 058
     Dates: start: 20100701, end: 20101015
  6. VOLTAREN [Concomitant]
     Indication: PAIN
     Dosage: 1 TABLET / 3 DAYS
     Route: 048
     Dates: start: 20050101, end: 20050615
  7. VOLTAREN [Concomitant]
  8. RANITIDINE [Concomitant]
     Indication: PROPHYLAXIS
     Dosage: 1 DF, QD
     Route: 048
     Dates: start: 20101001
  9. DULCOLAX [Concomitant]
     Dosage: 1 TABLET / 3 DAYS
     Route: 048
     Dates: start: 20050101, end: 20050615
  10. LISADOR [Concomitant]
     Dosage: 1 TABLET / 3 DAYS
     Route: 048
     Dates: start: 20050101, end: 20050615

REACTIONS (43)
  - CEREBROVASCULAR ACCIDENT [None]
  - AMNESIA [None]
  - TREMOR [None]
  - IRRITABILITY [None]
  - ANXIETY [None]
  - FAECAL INCONTINENCE [None]
  - ASTHENIA [None]
  - ARTHRALGIA [None]
  - ANAEMIA [None]
  - DYSURIA [None]
  - PLATELET COUNT INCREASED [None]
  - MUSCULAR WEAKNESS [None]
  - DIARRHOEA HAEMORRHAGIC [None]
  - ABDOMINAL PAIN [None]
  - URINARY TRACT INFECTION [None]
  - URETHRAL HAEMORRHAGE [None]
  - THROMBOCYTOSIS [None]
  - EMOTIONAL DISORDER [None]
  - DYSPHONIA [None]
  - BLADDER PAIN [None]
  - APHAGIA [None]
  - DIARRHOEA [None]
  - SYNCOPE [None]
  - SENSITIVITY OF TEETH [None]
  - GAIT DISTURBANCE [None]
  - LEUKOPENIA [None]
  - RENAL PAIN [None]
  - HYPERHIDROSIS [None]
  - ANORECTAL DISORDER [None]
  - WEIGHT DECREASED [None]
  - INSOMNIA [None]
  - HYPOTENSION [None]
  - GINGIVAL RECESSION [None]
  - MULTIPLE SCLEROSIS [None]
  - THROMBOSIS [None]
  - APHASIA [None]
  - MYALGIA [None]
  - NEUTROPENIA [None]
  - RESPIRATORY FAILURE [None]
  - COORDINATION ABNORMAL [None]
  - WOUND [None]
  - DECREASED APPETITE [None]
  - TOOTH FRACTURE [None]
